FAERS Safety Report 10588841 (Version 1)
Quarter: 2014Q4

REPORT INFORMATION
  Report Type: Spontaneous
  Country: US (occurrence: US)
  Receive Date: 20141117
  Receipt Date: 20141117
  Transmission Date: 20150529
  Serious: No
  Sender: FDA-Public Use
  Company Number: US-SA-2014SA139738

PATIENT
  Sex: Female

DRUGS (1)
  1. SKLICE [Suspect]
     Active Substance: IVERMECTIN
     Indication: LICE INFESTATION
     Dosage: DOSE: 0.5% 4 OZ?FORM: LOTION
     Route: 061
     Dates: start: 20141005

REACTIONS (1)
  - Headache [Not Recovered/Not Resolved]

NARRATIVE: CASE EVENT DATE: 20141005
